FAERS Safety Report 7246505-X (Version None)
Quarter: 2011Q1

REPORT INFORMATION
  Report Type: 
  Country: None (occurrence: None)
  Receive Date: 20110126
  Receipt Date: 20110121
  Transmission Date: 20110831
  Serious: Yes (Other)
  Sender: FDA-Public Use
  Company Number: IT-SANOFI-AVENTIS-2011SA004126

PATIENT
  Age: 79 Year
  Sex: Female

DRUGS (8)
  1. ALLOPURINOL [Concomitant]
     Route: 065
  2. PLAVIX [Suspect]
     Indication: ACUTE MYOCARDIAL INFARCTION
     Route: 048
     Dates: start: 20100906
  3. TAVANIC [Suspect]
     Indication: HYPERPYREXIA
     Route: 048
     Dates: start: 20110111, end: 20110115
  4. ESOMEPRAZOLE [Concomitant]
     Route: 065
  5. ATORVASTATIN CALCIUM [Concomitant]
     Route: 065
  6. COUMADIN [Suspect]
     Indication: ATRIAL FIBRILLATION
     Route: 048
     Dates: start: 20100906, end: 20110116
  7. FUROSEMIDE [Concomitant]
     Route: 065
  8. SERTRALINE HYDROCHLORIDE [Concomitant]
     Route: 065

REACTIONS (2)
  - COAGULOPATHY [None]
  - DRUG INTERACTION [None]
